FAERS Safety Report 8540973-9 (Version None)
Quarter: 2012Q3

REPORT INFORMATION
  Report Type: 
  Country: None (occurrence: None)
  Receive Date: 20120726
  Receipt Date: 20110808
  Transmission Date: 20120928
  Serious: No
  Sender: FDA-Public Use
  Company Number: US-ASTRAZENECA-2011SE47494

PATIENT
  Age: 20 Year
  Sex: Male

DRUGS (4)
  1. STRATTERA [Concomitant]
  2. ZYRTEC [Concomitant]
  3. SEROQUEL XR [Suspect]
     Indication: AFFECTIVE DISORDER
     Route: 048
     Dates: start: 20070101
  4. NASONEX [Concomitant]

REACTIONS (2)
  - WHITE BLOOD CELL COUNT DECREASED [None]
  - LYMPHADENOPATHY [None]
